FAERS Safety Report 8180354-3 (Version None)
Quarter: 2012Q1

REPORT INFORMATION
  Report Type: 
  Country: None (occurrence: None)
  Receive Date: 20120302
  Receipt Date: 20120229
  Transmission Date: 20120608
  Serious: Yes (Other)
  Sender: FDA-Public Use
  Company Number: US-PFIZER INC-2012054467

PATIENT
  Age: 77 Year
  Sex: Male
  Weight: 81.633 kg

DRUGS (3)
  1. LIPITOR [Suspect]
     Indication: LOW DENSITY LIPOPROTEIN INCREASED
  2. LIPITOR [Suspect]
     Indication: BLOOD CHOLESTEROL ABNORMAL
     Dosage: 10 MG, DAILY
     Route: 048
  3. PREVACID [Concomitant]
     Indication: HIATUS HERNIA
     Dosage: 30 MG, DAILY

REACTIONS (1)
  - AMNESIA [None]
